FAERS Safety Report 18392863 (Version 1)
Quarter: 2020Q4

REPORT INFORMATION
  Report Type: Spontaneous
  Country: ES (occurrence: ES)
  Receive Date: 20201016
  Receipt Date: 20201016
  Transmission Date: 20210114
  Serious: Yes (Other)
  Sender: FDA-Public Use
  Company Number: ES-MYLANLABS-2020M1086604

PATIENT
  Age: 81 Year
  Sex: Female

DRUGS (3)
  1. ENALAPRIL [Concomitant]
     Active Substance: ENALAPRIL
     Indication: HYPERTENSION
     Dosage: 5 MILLIGRAM, QD
  2. DONEPEZIL. [Suspect]
     Active Substance: DONEPEZIL
     Indication: DEMENTIA ALZHEIMER^S TYPE
     Dosage: 10 MG, DAILY (INCREASED DOSE)
  3. DONEPEZIL. [Suspect]
     Active Substance: DONEPEZIL
     Dosage: 5 MILLIGRAM, QD

REACTIONS (8)
  - Orthopnoea [Recovered/Resolved]
  - Nocturnal dyspnoea [Recovered/Resolved]
  - Dizziness [Recovered/Resolved]
  - Cardiac dysfunction [Recovered/Resolved]
  - Sinus bradycardia [Recovered/Resolved]
  - Left ventricular failure [Recovered/Resolved]
  - Syncope [Recovered/Resolved]
  - Dyspnoea [Recovered/Resolved]
